FAERS Safety Report 19979374 (Version 1)
Quarter: 2021Q4

REPORT INFORMATION
  Report Type: Spontaneous
  Country: US (occurrence: US)
  Receive Date: 20211021
  Receipt Date: 20211021
  Transmission Date: 20220304
  Serious: No
  Sender: FDA-Public Use
  Company Number: US-JNJFOC-20211018584

PATIENT
  Age: 45 Year
  Sex: Female
  Weight: 88 kg

DRUGS (3)
  1. TYLENOL [Suspect]
     Active Substance: ACETAMINOPHEN
     Indication: Product used for unknown indication
     Route: 065
  2. COVID-19 VACCINE [Concomitant]
     Indication: Immunisation
     Dosage: FIRST DOSE
     Route: 065
     Dates: start: 20210907
  3. COVID-19 VACCINE [Concomitant]
     Dosage: SECOND DOSE
     Route: 065
     Dates: start: 20210929

REACTIONS (1)
  - Drug ineffective [Unknown]
